FAERS Safety Report 6904006-X (Version None)
Quarter: 2010Q3

REPORT INFORMATION
  Report Type: 
  Country: None (occurrence: None)
  Receive Date: 20100804
  Receipt Date: 20090305
  Transmission Date: 20110219
  Serious: No
  Sender: FDA-Public Use
  Company Number: US-PFIZER INC-2009152323

PATIENT
  Sex: Male

DRUGS (1)
  1. LYRICA [Suspect]
     Dosage: 75 MG, 2X/DAY
     Route: 048
     Dates: start: 20081201, end: 20081201

REACTIONS (5)
  - CARPAL TUNNEL SYNDROME [None]
  - FAECAL INCONTINENCE [None]
  - HAND DEFORMITY [None]
  - MUSCULOSKELETAL DISCOMFORT [None]
  - URINARY INCONTINENCE [None]
